FAERS Safety Report 9402074 (Version 2)
Quarter: 2013Q4

REPORT INFORMATION
  Report Type: Report from Study
  Country: US (occurrence: US)
  Receive Date: 20130716
  Receipt Date: 20131213
  Transmission Date: 20140711
  Serious: No
  Sender: FDA-Public Use
  Company Number: PHEH2013US014647

PATIENT
  Age: 72 Year
  Sex: Female

DRUGS (12)
  1. TASIGNA [Suspect]
     Indication: CHRONIC MYELOID LEUKAEMIA
     Dosage: 300 MG, BID
     Route: 048
     Dates: start: 20110113
  2. TUDORZA PRESSAIR [Suspect]
  3. CRESTOR [Concomitant]
     Dosage: 20 MG
  4. LEVOTHYROXINE [Concomitant]
     Dosage: 75 UG
  5. POTASSIUM [Concomitant]
     Dosage: 10 MEQ
  6. CENTRUM SILVER [Concomitant]
  7. FISH OIL [Concomitant]
     Dosage: 1000 MG, QID
  8. COQ10//UBIDECARENONE [Concomitant]
     Dosage: 200 MG, QD
  9. VITAMIN D3 [Concomitant]
     Dosage: 2000 MG, BID
  10. ASPIRIN [Concomitant]
     Dosage: 325 MG, QD
  11. LEXAPRO [Concomitant]
     Dosage: 20 MG, QD
  12. VITAMIN C [Concomitant]

REACTIONS (4)
  - Hair growth abnormal [Unknown]
  - Alopecia [Unknown]
  - Rash [Unknown]
  - Vomiting [Recovered/Resolved]
